FAERS Safety Report 23259971 (Version 2)
Quarter: 2023Q4

REPORT INFORMATION
  Report Type: Spontaneous
  Country: SE (occurrence: SE)
  Receive Date: 20231204
  Receipt Date: 20231208
  Transmission Date: 20240110
  Serious: Yes (Hospitalization)
  Sender: FDA-Public Use
  Company Number: None

PATIENT
  Age: 85 Year
  Sex: Male

DRUGS (16)
  1. INSPRA [Suspect]
     Active Substance: EPLERENONE
     Indication: Diuretic therapy
     Dosage: 25 MILLIGRAM, QD
     Route: 065
     Dates: start: 20180123, end: 20231103
  2. LOSARTAN [Suspect]
     Active Substance: LOSARTAN
     Indication: Hypertension
     Dosage: 50 MILLIGRAM, QD
     Route: 065
     Dates: start: 20181011, end: 20231103
  3. Folsyra vitabalans [Concomitant]
     Dosage: 1 MILLIGRAM, Q2D
     Route: 065
     Dates: start: 20231023
  4. SERTRALINE HYDROCHLORIDE [Concomitant]
     Active Substance: SERTRALINE HYDROCHLORIDE
     Dosage: 50 MILLIGRAM, QD
     Route: 065
     Dates: start: 20220522
  5. RETACRIT [Concomitant]
     Active Substance: EPOETIN ALFA-EPBX
     Dosage: 10000 INTERNATIONAL UNIT, Q2W
     Route: 065
     Dates: start: 20190520
  6. DAPAGLIFLOZIN [Concomitant]
     Active Substance: DAPAGLIFLOZIN
     Dosage: 10 MILLIGRAM, QD
     Route: 065
     Dates: start: 20221003
  7. METHOTREXATE [Concomitant]
     Active Substance: METHOTREXATE
     Dosage: 17.5 MILLIGRAM, QW
     Route: 065
     Dates: start: 20220521
  8. FUROSEMIDE [Concomitant]
     Active Substance: FUROSEMIDE
     Dosage: 40 MILLIGRAM, QD
     Route: 065
     Dates: start: 20230930
  9. SIMVASTATIN [Concomitant]
     Active Substance: SIMVASTATIN
     Dosage: 20 MILLIGRAM, QD
     Route: 065
     Dates: start: 20170407
  10. LOCOBASE LPL [Concomitant]
     Dosage: QD (1-2 TIMES DAILY)
     Route: 065
     Dates: start: 20231030
  11. AMOROLFINE [Concomitant]
     Active Substance: AMOROLFINE
     Dosage: QW (1 APPLICATION EVERY WEEK FOR 6-12 MONTHS)
     Route: 065
     Dates: start: 20230523
  12. MULTAQ [Concomitant]
     Active Substance: DRONEDARONE
     Dosage: 400 MILLIGRAM, BID
     Route: 065
     Dates: start: 20221005
  13. OMEPRAZOLE [Concomitant]
     Active Substance: OMEPRAZOLE
     Dosage: 20 MILLIGRAM, PRN
     Route: 065
     Dates: start: 20231011
  14. ASACOL [Concomitant]
     Active Substance: MESALAMINE
     Dosage: 2400 MILLIGRAM, QD
     Route: 065
     Dates: start: 20231011
  15. EDOXABAN TOSYLATE [Concomitant]
     Active Substance: EDOXABAN TOSYLATE
     Dosage: 30 MILLIGRAM, QD
     Route: 065
     Dates: start: 20221006
  16. HYDROCORTISONE\MICONAZOLE NITRATE [Concomitant]
     Active Substance: HYDROCORTISONE\MICONAZOLE NITRATE
     Dosage: BID (1 APPLICATION 2 TIMES DAILY)
     Route: 065
     Dates: start: 20230727

REACTIONS (2)
  - Acute kidney injury [Unknown]
  - Chest pain [Unknown]

NARRATIVE: CASE EVENT DATE: 20231101
